FAERS Safety Report 9242716 (Version 3)
Quarter: 2013Q2

REPORT INFORMATION
  Report Type: Spontaneous
  Country: MX (occurrence: MX)
  Receive Date: 20130419
  Receipt Date: 20130604
  Transmission Date: 20140414
  Serious: Yes (Other)
  Sender: FDA-Public Use
  Company Number: MX-ELI_LILLY_AND_COMPANY-MX201304003269

PATIENT
  Sex: Female

DRUGS (5)
  1. CYMBALTA [Suspect]
     Indication: ANXIETY
     Dosage: 30 MG, UNKNOWN
     Dates: start: 201110
  2. CYMBALTA [Suspect]
     Dosage: 60 MG, UNKNOWN
  3. CYMBALTA [Suspect]
     Dosage: 30 MG, UNKNOWN
  4. CYMBALTA [Suspect]
     Dosage: UNK, QOD
     Dates: end: 20130411
  5. ACLIMAFEL [Concomitant]
     Dosage: UNK, UNKNOWN

REACTIONS (16)
  - Road traffic accident [Recovered/Resolved]
  - Feeling drunk [Recovered/Resolved]
  - Emotional disorder [Recovered/Resolved]
  - Pain [Recovered/Resolved]
  - Atrophy [Recovered/Resolved]
  - Nausea [Recovered/Resolved]
  - Visual impairment [Recovered/Resolved]
  - Dizziness [Recovered/Resolved]
  - Pain in extremity [Recovering/Resolving]
  - Hypoaesthesia [Recovered/Resolved]
  - Sedation [Recovered/Resolved]
  - Feeling abnormal [Recovered/Resolved]
  - Confusional state [Recovered/Resolved]
  - Feeling abnormal [Recovered/Resolved]
  - Tremor [Recovered/Resolved]
  - Drug withdrawal syndrome [Recovered/Resolved]
